FAERS Safety Report 18264457 (Version 3)
Quarter: 2020Q4

REPORT INFORMATION
  Report Type: Spontaneous
  Country: US (occurrence: US)
  Receive Date: 20200914
  Receipt Date: 20201014
  Transmission Date: 20210113
  Serious: Yes (Hospitalization)
  Sender: FDA-Public Use
  Company Number: US-PFIZER INC-2019539411

PATIENT
  Age: 81 Year
  Sex: Female
  Weight: 83 kg

DRUGS (1)
  1. IBRANCE [Suspect]
     Active Substance: PALBOCICLIB
     Indication: BREAST CANCER FEMALE
     Dosage: 100 MG, CYCLIC (ONCE DAILY X 21 DAYS Q 28 DAYS]
     Dates: start: 20200107, end: 20200921

REACTIONS (4)
  - White blood cell count decreased [Unknown]
  - Nausea [Not Recovered/Not Resolved]
  - Pyrexia [Unknown]
  - Decreased appetite [Not Recovered/Not Resolved]

NARRATIVE: CASE EVENT DATE: 2020
